FAERS Safety Report 4317256-6 (Version None)
Quarter: 2004Q1

REPORT INFORMATION
  Report Type: 
  Country: None (occurrence: None)
  Receive Date: 20040312
  Receipt Date: 20040225
  Transmission Date: 20041129
  Serious: Yes (Other)
  Sender: FDA-Public Use
  Company Number: 2000-BP-02292(1)

PATIENT
  Age: 2 Day
  Sex: Female

DRUGS (4)
  1. VIRAMUNE [Suspect]
     Indication: PROPHYLAXIS AGAINST HIV INFECTION
     Dosage: 200 MG (NR, SINGLE DOSE) IU; SINGLE DOSE
     Route: 015
     Dates: start: 20000827, end: 20000827
  2. ZIDOVUDINE [Concomitant]
  3. FERROUS SULFATE TAB [Concomitant]
  4. FOLIC ACID [Concomitant]

REACTIONS (9)
  - ASPARTATE AMINOTRANSFERASE INCREASED [None]
  - COMPLICATIONS OF MATERNAL EXPOSURE TO THERAPEUTIC DRUGS [None]
  - DRUG EXPOSURE DURING PREGNANCY [None]
  - HAEMATOCRIT DECREASED [None]
  - HAEMOGLOBIN DECREASED [None]
  - LYMPHOCYTOPENIA NEONATAL [None]
  - MONOCYTE PERCENTAGE DECREASED [None]
  - NEUTROPENIA NEONATAL [None]
  - PLATELET COUNT DECREASED [None]
